FAERS Safety Report 24424979 (Version 2)
Quarter: 2024Q4

REPORT INFORMATION
  Report Type: Spontaneous
  Country: US (occurrence: US)
  Receive Date: 20241010
  Receipt Date: 20241030
  Transmission Date: 20250114
  Serious: Yes (Other)
  Sender: BRISTOL-MYERS SQUIBB COMPANY
  Company Number: US-BRISTOL-MYERS SQUIBB COMPANY-2024-156205

PATIENT
  Age: 66 Year
  Sex: Male

DRUGS (2)
  1. POMALYST [Suspect]
     Active Substance: POMALIDOMIDE
     Indication: Plasma cell myeloma
     Dosage: TAKE 1 CAPSULE BY MOUTH ONCE DAILY FOR 21 DAYS ON, THEN 7 DAYS OFF
     Route: 048
  2. FLAX SEEDS [Suspect]
     Active Substance: FLAX SEEDS
     Indication: Product used for unknown indication

REACTIONS (8)
  - Pneumonia [Recovered/Resolved]
  - Arthropathy [Recovered/Resolved]
  - Product dose omission in error [Unknown]
  - Intentional dose omission [Unknown]
  - Feeding disorder [Unknown]
  - Diarrhoea [Recovering/Resolving]
  - Retching [Unknown]
  - Asthenia [Unknown]

NARRATIVE: CASE EVENT DATE: 20241019
